FAERS Safety Report 18318325 (Version 1)
Quarter: 2020Q3

REPORT INFORMATION
  Report Type: Spontaneous
  Country: US (occurrence: US)
  Receive Date: 20200925
  Receipt Date: 20200925
  Transmission Date: 20201103
  Serious: Yes (Hospitalization)
  Sender: FDA-Public Use
  Company Number: None

PATIENT
  Age: 64 Year
  Sex: Male

DRUGS (13)
  1. ARANESP [Concomitant]
     Active Substance: DARBEPOETIN ALFA
  2. OMEPRAZOLE. [Concomitant]
     Active Substance: OMEPRAZOLE
  3. DEXAMETHASON [Concomitant]
     Active Substance: DEXAMETHASONE
  4. LOPERAMIDE [Concomitant]
     Active Substance: LOPERAMIDE
  5. MIRALAX [Concomitant]
     Active Substance: POLYETHYLENE GLYCOL 3350
  6. TAMSULOSIN [Concomitant]
     Active Substance: TAMSULOSIN
  7. ACYCLOVIR. [Concomitant]
     Active Substance: ACYCLOVIR
  8. BACTRIM [Concomitant]
     Active Substance: SULFAMETHOXAZOLE\TRIMETHOPRIM
  9. VELCADE [Suspect]
     Active Substance: BORTEZOMIB
     Indication: PLASMA CELL MYELOMA
     Dosage: ?          OTHER FREQUENCY:D 1,8,15,22;OTHER ROUTE:SQ?28 D CYCLE?
     Route: 058
  10. METOPROLOL. [Concomitant]
     Active Substance: METOPROLOL
  11. CYCLOPHOSPH [Concomitant]
  12. ELIQUIS [Concomitant]
     Active Substance: APIXABAN
  13. ONDANSETRON [Concomitant]
     Active Substance: ONDANSETRON

REACTIONS (1)
  - Hospitalisation [None]

NARRATIVE: CASE EVENT DATE: 20200923
